FAERS Safety Report 17108750 (Version 2)
Quarter: 2019Q4

REPORT INFORMATION
  Report Type: Spontaneous
  Country: GB (occurrence: GB)
  Receive Date: 20191203
  Receipt Date: 20191218
  Transmission Date: 20200122
  Serious: Yes (Other)
  Sender: FDA-Public Use
  Company Number: GB-SA-2019SA333228

PATIENT
  Sex: Female

DRUGS (1)
  1. APROVEL [Suspect]
     Active Substance: IRBESARTAN
     Dosage: UNK UNK, UNK
     Route: 065

REACTIONS (7)
  - Malaise [Recovered/Resolved]
  - Product coating issue [Unknown]
  - Disturbance in attention [Recovered/Resolved]
  - Product availability issue [Unknown]
  - Nausea [Recovered/Resolved]
  - Ill-defined disorder [Unknown]
  - Loss of consciousness [Recovered/Resolved]
